FAERS Safety Report 8150849-7 (Version None)
Quarter: 2012Q1

REPORT INFORMATION
  Report Type: 
  Country: None (occurrence: None)
  Receive Date: 20120220
  Receipt Date: 20120207
  Transmission Date: 20120608
  Serious: Yes (Other)
  Sender: FDA-Public Use
  Company Number: FR-ELI_LILLY_AND_COMPANY-FR201202001880

PATIENT
  Age: 46 Year
  Sex: Female

DRUGS (2)
  1. ZYPREXA [Suspect]
     Indication: MAJOR DEPRESSION
     Dosage: UNK, UNKNOWN
     Dates: start: 20080101, end: 20110101
  2. CYMBALTA [Suspect]
     Indication: MAJOR DEPRESSION
     Dosage: 60 MG, UNKNOWN
     Route: 048
     Dates: start: 20080101

REACTIONS (9)
  - SUICIDAL IDEATION [None]
  - PSYCHOMOTOR HYPERACTIVITY [None]
  - PARAESTHESIA [None]
  - AGGRESSION [None]
  - SUICIDE ATTEMPT [None]
  - GAMMA-GLUTAMYLTRANSFERASE INCREASED [None]
  - TINNITUS [None]
  - APHASIA [None]
  - WEIGHT INCREASED [None]
